FAERS Safety Report 9357305 (Version 5)
Quarter: 2014Q3

REPORT INFORMATION
  Report Type: Spontaneous
  Country: US (occurrence: US)
  Receive Date: 20130620
  Receipt Date: 20140701
  Transmission Date: 20150326
  Serious: Yes (Hospitalization)
  Sender: FDA-Public Use
  Company Number: US-BAYER-2013-073675

PATIENT
  Age: 23 Year
  Sex: Female
  Weight: 66 kg

DRUGS (3)
  1. MIRENA [Suspect]
     Active Substance: LEVONORGESTREL
     Indication: CONTRACEPTION
     Dosage: 20 MCG/24HR, CONT
     Route: 015
     Dates: start: 201211, end: 201301
  2. TERAZOL 7 [Concomitant]
     Active Substance: TERCONAZOLE
     Dosage: 0.4 1 APPLICATOR QHS (AT BEDTIME) 7 DAYS THEN 1 APPLICATOR ONCE A WEEK
     Route: 067
     Dates: start: 20111003
  3. KEFLEX [Concomitant]
     Active Substance: CEPHALEXIN
     Indication: LYMPHADENITIS
     Dosage: 500 MG, QID
     Route: 048
     Dates: start: 20111117

REACTIONS (13)
  - Uterine perforation [None]
  - Abdominal pain [None]
  - Procedural pain [None]
  - Medical device pain [None]
  - Device dislocation [None]
  - Medical device discomfort [None]
  - Pain [None]
  - Musculoskeletal pain [None]
  - Device difficult to use [None]
  - Device issue [None]
  - Injury [None]
  - Pelvic pain [None]
  - Emotional distress [None]

NARRATIVE: CASE EVENT DATE: 201301
